FAERS Safety Report 18659243 (Version 1)
Quarter: 2020Q4

REPORT INFORMATION
  Report Type: Spontaneous
  Country: ID (occurrence: ID)
  Receive Date: 20201224
  Receipt Date: 20201224
  Transmission Date: 20210114
  Serious: Yes (Hospitalization, Other)
  Sender: FDA-Public Use
  Company Number: ID-BRISTOL-MYERS SQUIBB COMPANY-BMS-2020-109283

PATIENT
  Age: 63 Year
  Sex: Male

DRUGS (2)
  1. TRIAMCINOLONE ACETONIDE. [Suspect]
     Active Substance: TRIAMCINOLONE ACETONIDE
     Indication: LUMBAR SPINAL STENOSIS
     Dosage: 40 MILLIGRAM
     Route: 065
  2. BUPIVACAINE. [Suspect]
     Active Substance: BUPIVACAINE
     Indication: LUMBAR SPINAL STENOSIS
     Dosage: 8 ML OF 0.25 PERCENT
     Route: 065

REACTIONS (2)
  - Cauda equina syndrome [Recovered/Resolved]
  - Intentional product use issue [Unknown]
